FAERS Safety Report 5137902-7 (Version None)
Quarter: 2006Q4

REPORT INFORMATION
  Report Type: 
  Country: None (occurrence: None)
  Receive Date: 20061030
  Receipt Date: 20060207
  Transmission Date: 20070319
  Serious: No
  Sender: FDA-Public Use
  Company Number: US-GLAXOSMITHKLINE-A0592655A

PATIENT
  Age: 68 Year
  Sex: Female
  Weight: 118.2 kg

DRUGS (9)
  1. ADVAIR HFA [Suspect]
     Indication: PNEUMONIA
     Route: 055
     Dates: start: 20051226, end: 20060101
  2. KETEK [Suspect]
     Indication: PNEUMONIA
     Dosage: 800MG PER DAY
     Route: 048
     Dates: start: 20051226, end: 20060101
  3. HISTUSSIN HC [Concomitant]
     Indication: PNEUMONIA
     Dosage: 10ML FOUR TIMES PER DAY
     Route: 048
     Dates: start: 20051226, end: 20060101
  4. GLUCOPHAGE XR [Concomitant]
     Indication: DIABETES MELLITUS
     Dosage: 1000MG PER DAY
     Route: 048
  5. EVISTA [Concomitant]
     Indication: OSTEOPOROSIS
     Dosage: 60MG PER DAY
     Route: 048
  6. ARTHROTEC [Concomitant]
     Dosage: 75MG PER DAY
     Route: 048
  7. TARKA [Concomitant]
     Indication: HYPERTENSION
     Route: 048
  8. DIOVAN HCT [Concomitant]
     Indication: HYPERTENSION
     Route: 048
  9. UNKNOWN MEDICATION [Concomitant]
     Indication: LIPIDS
     Route: 048

REACTIONS (1)
  - TOOTH DISCOLOURATION [None]
